FAERS Safety Report 4591125-9 (Version None)
Quarter: 2005Q1

REPORT INFORMATION
  Report Type: 
  Country: None (occurrence: None)
  Receive Date: 20050222
  Receipt Date: 20050211
  Transmission Date: 20050727
  Serious: Yes (Hospitalization)
  Sender: FDA-Public Use
  Company Number: 2005-125212-NL

PATIENT
  Age: 82 Year
  Sex: Female

DRUGS (14)
  1. MIRTAZAPINE [Suspect]
     Indication: DEPRESSION
     Dosage: 15 MG QD ORAL
     Route: 048
     Dates: start: 20050202, end: 20050202
  2. ONDANSETRON HYDROCHLORIDE [Suspect]
     Indication: NAUSEA
     Dosage: 2 MG QD ORAL
     Route: 048
     Dates: start: 20050203
  3. ACETYLSALICYLIC ACID [Concomitant]
  4. PANTOPRAZOLE SODIUM [Concomitant]
  5. METOCLOPRAMIDE HYDROCHLORIDE [Concomitant]
  6. DELIX PLUS [Concomitant]
  7. AMLODIPINE [Concomitant]
  8. BELCH ZAK MITE [Concomitant]
  9. TORSEMIDE [Concomitant]
  10. CITALOPRAM HYDROBROMIDE [Concomitant]
  11. TIOTROPIUM BROMIDE [Concomitant]
  12. SYMBICORT    /CAN/ [Concomitant]
  13. FENTANYL [Concomitant]
  14. MOVICOL [Concomitant]

REACTIONS (9)
  - APHASIA [None]
  - ASPARTATE AMINOTRANSFERASE INCREASED [None]
  - BLOOD CREATININE INCREASED [None]
  - BLOOD LACTATE DEHYDROGENASE INCREASED [None]
  - C-REACTIVE PROTEIN INCREASED [None]
  - DISORIENTATION [None]
  - PNEUMONIA [None]
  - SLUGGISHNESS [None]
  - WHITE BLOOD CELL COUNT INCREASED [None]
